FAERS Safety Report 9524964 (Version 1)
Quarter: 2013Q1

REPORT INFORMATION
  Report Type: Spontaneous
  Country: US (occurrence: None)
  Receive Date: 20130305
  Receipt Date: 20130305
  Transmission Date: 20140127
  Serious: Yes (Other)
  Sender: FDA-Public Use
  Company Number: 163-21880-12023166

PATIENT
  Age: 67 Year
  Sex: Female

DRUGS (7)
  1. REVLIMID (LENALIDOMIDE) (CAPSULES) [Suspect]
     Indication: PLASMA CELL MYELOMA
     Route: 048
     Dates: start: 20111220
  2. CARVEDILOL (CARVEDILOL) (UNKNOWN) [Concomitant]
  3. DIOVAN (VALSARTAN) (UNKNOWN) [Concomitant]
  4. FUROSEMIDE (FUROSEMIDE) (UNKNOWN) [Concomitant]
  5. HYDROMORPHONE HCL (HYDROMORPHONE HYDROCHLORIDE) (UNKNOWN) [Concomitant]
  6. LORAZEPAM (LORAZEPAM) (UNKNOW) [Concomitant]
  7. OXYCODONE HCL (OXYCODONE HYDROCHLORIDE) (UNKNOWN) [Concomitant]

REACTIONS (1)
  - Thrombosis [None]
